FAERS Safety Report 23975950 (Version 1)
Quarter: 2024Q2

REPORT INFORMATION
  Report Type: Spontaneous
  Country: CN (occurrence: CN)
  Receive Date: 20240614
  Receipt Date: 20240614
  Transmission Date: 20240715
  Serious: Yes (Hospitalization, Other)
  Sender: FDA-Public Use
  Company Number: None

PATIENT
  Age: 14 Year
  Sex: Female

DRUGS (5)
  1. CYCLOPHOSPHAMIDE [Suspect]
     Active Substance: CYCLOPHOSPHAMIDE
     Indication: Rhabdomyosarcoma
     Dosage: 3 G, ONE TIME IN ONE DAY
     Route: 041
     Dates: start: 20231225, end: 20231225
  2. MESNA [Suspect]
     Active Substance: MESNA
     Indication: Rhabdomyosarcoma
     Dosage: 0.6 G, THREE TIMES IN ONE DAY, D1-2
     Route: 041
     Dates: start: 20231225, end: 20231226
  3. DACTINOMYCIN [Suspect]
     Active Substance: DACTINOMYCIN
     Indication: Rhabdomyosarcoma
     Dosage: 2.1 MG, ONE TIME IN ONE DAY, D1, (ACTINOMYCIN D)
     Route: 041
     Dates: start: 20231225, end: 20231225
  4. VINCRISTINE SULFATE [Suspect]
     Active Substance: VINCRISTINE SULFATE
     Indication: Rhabdomyosarcoma
     Dosage: 2 MG, ONE TIME IN ONE DAY, D1
     Route: 041
     Dates: start: 20231225, end: 20231225
  5. MECAPEGFILGRASTIM [Suspect]
     Active Substance: MECAPEGFILGRASTIM
     Indication: Prophylaxis
     Dosage: 6 MG, ONCE, AFTER CHEMOTHERAPY, START DATE: DEC-2023
     Route: 058

REACTIONS (1)
  - Myelosuppression [Recovering/Resolving]

NARRATIVE: CASE EVENT DATE: 20231231
